FAERS Safety Report 17769904 (Version 3)
Quarter: 2021Q2

REPORT INFORMATION
  Report Type: Spontaneous
  Country: US (occurrence: US)
  Receive Date: 20200512
  Receipt Date: 20210622
  Transmission Date: 20210716
  Serious: Yes (Other)
  Sender: FDA-Public Use
  Company Number: US-GILEAD-2020-0465597

PATIENT
  Age: 60 Year
  Sex: Female
  Weight: 87.53 kg

DRUGS (7)
  1. TRUVADA [Suspect]
     Active Substance: EMTRICITABINE\TENOFOVIR DISOPROXIL FUMARATE
     Dosage: UNK
     Route: 048
     Dates: start: 201301, end: 201701
  2. VIREAD [Suspect]
     Active Substance: TENOFOVIR DISOPROXIL FUMARATE
     Indication: HIV INFECTION
     Dosage: UNK
     Route: 048
     Dates: start: 201301, end: 201701
  3. TYLENOL [Concomitant]
     Active Substance: ACETAMINOPHEN
  4. TRUVADA [Suspect]
     Active Substance: EMTRICITABINE\TENOFOVIR DISOPROXIL FUMARATE
     Indication: HIV INFECTION
     Dosage: UNK
     Route: 048
     Dates: start: 2004, end: 2016
  5. BIKTARVY [Concomitant]
     Active Substance: BICTEGRAVIR SODIUM\EMTRICITABINE\TENOFOVIR ALAFENAMIDE FUMARATE
  6. VALIUM [Concomitant]
     Active Substance: DIAZEPAM
  7. VICODIN [Concomitant]
     Active Substance: ACETAMINOPHEN\HYDROCODONE BITARTRATE

REACTIONS (14)
  - Renal injury [Unknown]
  - Depression [Not Recovered/Not Resolved]
  - Multiple fractures [Unknown]
  - Skeletal injury [Unknown]
  - Bone density decreased [Unknown]
  - Emotional distress [Unknown]
  - Renal failure [Unknown]
  - Osteonecrosis [Unknown]
  - Bone loss [Unknown]
  - Pain [Unknown]
  - Anxiety [Not Recovered/Not Resolved]
  - Chronic kidney disease [Unknown]
  - Hip arthroplasty [Recovered/Resolved]
  - Renal impairment [Not Recovered/Not Resolved]

NARRATIVE: CASE EVENT DATE: 20120218
